FAERS Safety Report 23117211 (Version 3)
Quarter: 2023Q4

REPORT INFORMATION
  Report Type: Spontaneous
  Country: PH (occurrence: PH)
  Receive Date: 20231027
  Receipt Date: 20231120
  Transmission Date: 20240110
  Serious: Yes (Other)
  Sender: FDA-Public Use
  Company Number: PH-AstraZeneca-2023A241091

PATIENT
  Sex: Male

DRUGS (8)
  1. TRASTUZUMAB DERUXTECAN [Suspect]
     Active Substance: TRASTUZUMAB DERUXTECAN
     Indication: Metastasis
     Dosage: UNK, ONCE EVERY 3 WK
     Route: 041
     Dates: start: 20230601
  2. TRASTUZUMAB DERUXTECAN [Suspect]
     Active Substance: TRASTUZUMAB DERUXTECAN
     Indication: Lung neoplasm malignant
     Dosage: UNK, ONCE EVERY 3 WK
     Route: 041
     Dates: start: 20230720
  3. TRASTUZUMAB DERUXTECAN [Suspect]
     Active Substance: TRASTUZUMAB DERUXTECAN
     Dosage: UNK, ONCE EVERY 3 WK
     Route: 041
     Dates: start: 20230815
  4. TRASTUZUMAB DERUXTECAN [Suspect]
     Active Substance: TRASTUZUMAB DERUXTECAN
     Dosage: UNK, ONCE EVERY 3 WK
     Route: 041
     Dates: start: 20230914
  5. TRASTUZUMAB DERUXTECAN [Suspect]
     Active Substance: TRASTUZUMAB DERUXTECAN
     Dosage: UNK, ONCE EVERY 3 WK
     Route: 041
     Dates: start: 20231019
  6. LEVOPRONT [Concomitant]
     Indication: Cough
     Dosage: UNK
     Route: 065
  7. GLYCOAIR BREEZHALER [Concomitant]
     Indication: Oropharyngeal pain
     Dosage: UNK
     Route: 065
  8. LEVOCETIRIZINE DIHYDROCHLORIDE [Concomitant]
     Active Substance: LEVOCETIRIZINE DIHYDROCHLORIDE
     Indication: Cough
     Dosage: UNK
     Route: 065

REACTIONS (4)
  - Pulmonary fibrosis [Unknown]
  - Atelectasis [Unknown]
  - Left ventricular dysfunction [Unknown]
  - Anxiety [Unknown]
